FAERS Safety Report 14359993 (Version 4)
Quarter: 2018Q2

REPORT INFORMATION
  Report Type: Report from Study
  Country: None (occurrence: JP)
  Receive Date: 20180105
  Receipt Date: 20180427
  Transmission Date: 20180711
  Serious: Yes (Hospitalization)
  Sender: FDA-Public Use
  Company Number: JP-BAUSCH-BL-2017-036411

PATIENT
  Age: 75 Year
  Sex: Male

DRUGS (5)
  1. TARGRETIN [Suspect]
     Active Substance: BEXAROTENE
     Dosage: DOSE DECREASED - FOUR 75-MG CAPSULES
     Route: 048
     Dates: start: 20171214, end: 20171220
  2. THYRADIN-S [Suspect]
     Active Substance: LEVOTHYROXINE
     Indication: PRODUCT USED FOR UNKNOWN INDICATION
     Route: 048
     Dates: start: 20171214, end: 20171221
  3. TARGRETIN [Suspect]
     Active Substance: BEXAROTENE
     Indication: MYCOSIS FUNGOIDES
     Route: 048
     Dates: start: 20171208, end: 20171213
  4. BEZATOL [Suspect]
     Active Substance: BEZAFIBRATE
     Indication: BLOOD TRIGLYCERIDES INCREASED
     Route: 048
     Dates: start: 20171214, end: 20171221
  5. ANTEBATE [Concomitant]
     Active Substance: BETAMETHASONE DIPROPIONATE
     Indication: PRODUCT USED FOR UNKNOWN INDICATION

REACTIONS (4)
  - Hypothyroidism [Recovered/Resolved]
  - White blood cell count decreased [Recovered/Resolved]
  - Blood triglycerides increased [Not Recovered/Not Resolved]
  - Erythema multiforme [Recovering/Resolving]

NARRATIVE: CASE EVENT DATE: 20171214
